FAERS Safety Report 6765295-8 (Version None)
Quarter: 2010Q2

REPORT INFORMATION
  Report Type: 
  Country: None (occurrence: None)
  Receive Date: 20100611
  Receipt Date: 20100608
  Transmission Date: 20101027
  Serious: Yes (Other)
  Sender: FDA-Public Use
  Company Number: US-BAYER-201021586NA

PATIENT
  Age: 42 Year
  Sex: Female

DRUGS (9)
  1. BETASERON [Suspect]
     Indication: RELAPSING-REMITTING MULTIPLE SCLEROSIS
     Dosage: TOTAL DAILY DOSE: 6 MIU
     Route: 058
  2. BETASERON [Suspect]
     Dosage: TOTAL DAILY DOSE: 8 MIU
     Route: 058
     Dates: end: 20100520
  3. BETASERON [Suspect]
     Dosage: TOTAL DAILY DOSE: 6 MIU
     Route: 058
  4. BETASERON [Suspect]
     Dosage: TOTAL DAILY DOSE: 4 MIU
     Route: 058
     Dates: start: 20100406
  5. BETASERON [Suspect]
     Route: 058
     Dates: start: 20000701, end: 20040701
  6. LYRICA [Concomitant]
     Dosage: TOTAL DAILY DOSE: 50 MG
  7. FLEXERIL [Concomitant]
  8. FLEXERIL [Concomitant]
  9. TYLENOL [Concomitant]
     Indication: PREMEDICATION
     Dosage: PRIOR TO INJECTION

REACTIONS (15)
  - BONE PAIN [None]
  - CHILLS [None]
  - GAIT DISTURBANCE [None]
  - INJECTION SITE EXFOLIATION [None]
  - INJECTION SITE PAIN [None]
  - INJECTION SITE URTICARIA [None]
  - INTERVERTEBRAL DISC PROTRUSION [None]
  - JOINT SWELLING [None]
  - LOSS OF CONSCIOUSNESS [None]
  - MYALGIA [None]
  - NERVE INJURY [None]
  - PAIN [None]
  - POOR QUALITY SLEEP [None]
  - PYREXIA [None]
  - URINARY TRACT INFECTION [None]
